FAERS Safety Report 5363603-6 (Version None)
Quarter: 2007Q2

REPORT INFORMATION
  Report Type: 
  Country: None (occurrence: None)
  Receive Date: 20070620
  Receipt Date: 20070614
  Transmission Date: 20071010
  Serious: Yes (Hospitalization)
  Sender: FDA-Public Use
  Company Number: B0473690A

PATIENT
  Age: 75 Year
  Sex: Female
  Weight: 91 kg

DRUGS (2)
  1. ROSIGLITAZONE [Suspect]
     Dosage: 4MG PER DAY
     Route: 048
     Dates: start: 20010925
  2. EUGLUCON [Concomitant]
     Route: 048
     Dates: start: 19950913

REACTIONS (1)
  - DIVERTICULITIS [None]
